FAERS Safety Report 4440795-4 (Version None)
Quarter: 2004Q3

REPORT INFORMATION
  Report Type: 
  Country: None (occurrence: None)
  Receive Date: 20040903
  Receipt Date: 20040823
  Transmission Date: 20050211
  Serious: Yes (Other)
  Sender: FDA-Public Use
  Company Number: US-JNJFOC-20040807764

PATIENT
  Sex: Female

DRUGS (1)
  1. TOPAMAX [Suspect]
     Dosage: TOOK 40 TO 45 MG

REACTIONS (1)
  - TETANY [None]
